FAERS Safety Report 4297963-4 (Version None)
Quarter: 2004Q1

REPORT INFORMATION
  Report Type: 
  Country: None (occurrence: None)
  Receive Date: 20040218
  Receipt Date: 20001222
  Transmission Date: 20041129
  Serious: Yes (Hospitalization, Other)
  Sender: FDA-Public Use
  Company Number: US-BRISTOL-MYERS SQUIBB COMPANY-10659993

PATIENT
  Age: 25 Year
  Sex: Female
  Weight: 55 kg

DRUGS (21)
  1. STADOL [Suspect]
     Indication: MIGRAINE
     Route: 045
     Dates: start: 19970101, end: 20000201
  2. TORADOL [Concomitant]
  3. VISTARIL [Concomitant]
  4. ULTRAM [Concomitant]
  5. TRAZODONE HCL [Concomitant]
  6. FIORICET [Concomitant]
  7. DARVOCET [Concomitant]
  8. ELAVIL [Concomitant]
  9. SERZONE [Concomitant]
     Dosage: AT BEDTIME
  10. ESTRACE [Concomitant]
  11. DEPAKOTE [Concomitant]
  12. KLONOPIN [Concomitant]
  13. AMBIEN [Concomitant]
     Dosage: AT BEDTIME
  14. XANAX [Concomitant]
  15. BUSPAR [Concomitant]
  16. LORTAB [Concomitant]
  17. ENDOCET [Concomitant]
  18. PROMETHAZINE [Concomitant]
  19. IMITREX [Concomitant]
  20. VICOPROFEN [Concomitant]
  21. CODEINE + ACETAMINOPHEN [Concomitant]

REACTIONS (2)
  - DEPENDENCE [None]
  - SYNCOPE [None]
